FAERS Safety Report 21958079 (Version 8)
Quarter: 2024Q3

REPORT INFORMATION
  Report Type: Report from Study
  Country: RU (occurrence: RU)
  Receive Date: 20230206
  Receipt Date: 20240802
  Transmission Date: 20241016
  Serious: Yes (Death, Other)
  Sender: NOVARTIS
  Company Number: RU-002147023-NVSC2022RU198550

PATIENT
  Age: 57 Year
  Sex: Female
  Weight: 67 kg

DRUGS (9)
  1. KISQALI [Suspect]
     Active Substance: RIBOCICLIB
     Indication: Breast cancer
     Dosage: 600 MG, QD (FOR 21 DAYS FOLLOWED BY 7 DAYS BREAK)
     Route: 048
     Dates: start: 20220524, end: 20220605
  2. KISQALI [Suspect]
     Active Substance: RIBOCICLIB
     Dosage: 600 MG
     Route: 048
     Dates: start: 20220609, end: 20220613
  3. KISQALI [Suspect]
     Active Substance: RIBOCICLIB
     Dosage: 400 MG
     Route: 048
     Dates: start: 20220621, end: 20220628
  4. KISQALI [Suspect]
     Active Substance: RIBOCICLIB
     Dosage: 400 MG
     Route: 048
     Dates: start: 20220701, end: 20220711
  5. KISQALI [Suspect]
     Active Substance: RIBOCICLIB
     Dosage: 200 MG
     Route: 048
     Dates: start: 20220719, end: 20220824
  6. KISQALI [Suspect]
     Active Substance: RIBOCICLIB
     Dosage: 600 MG (PER DAY FOR 21 DAYS FOLLOWED BY 7 DAYS BREAK)
     Route: 065
     Dates: start: 20220824
  7. KISQALI [Suspect]
     Active Substance: RIBOCICLIB
     Dosage: UNK
     Route: 065
  8. ALPELISIB [Suspect]
     Active Substance: ALPELISIB
     Indication: Breast cancer
     Dosage: 300 MG, QD
     Route: 048
     Dates: start: 20221214, end: 20230125
  9. ANASTROZOLE [Concomitant]
     Active Substance: ANASTROZOLE
     Indication: Product used for unknown indication
     Dosage: 1 MG, QD (DAILY) (AS A LONG-TERM THERAPY)
     Route: 065
     Dates: start: 20220524, end: 20220824

REACTIONS (9)
  - Portal vein thrombosis [Fatal]
  - Breast cancer [Fatal]
  - Malignant neoplasm progression [Fatal]
  - Femoral neck fracture [Recovered/Resolved]
  - Femoral neck fracture [Recovered/Resolved]
  - Neutropenia [Recovered/Resolved]
  - Neutropenia [Recovered/Resolved]
  - Loss of consciousness [Recovered/Resolved]
  - Amnesia [Recovered/Resolved]

NARRATIVE: CASE EVENT DATE: 20220607
